FAERS Safety Report 9137750 (Version 1)
Quarter: 2013Q1

REPORT INFORMATION
  Report Type: Spontaneous
  Country: US (occurrence: US)
  Receive Date: 20130304
  Receipt Date: 20130304
  Transmission Date: 20140127
  Serious: Yes (Other)
  Sender: FDA-Public Use
  Company Number: US-WATSON-2013-03449

PATIENT
  Age: 50 Year
  Sex: Female
  Weight: 50 kg

DRUGS (5)
  1. NORCO [Suspect]
     Indication: BACK PAIN
     Dosage: 2 TABS Q 4-6 HRS
     Route: 048
     Dates: start: 20130117
  2. NORCO [Suspect]
     Indication: MIGRAINE
  3. OXYCONTIN [Suspect]
     Indication: BACK PAIN
     Dosage: 60 MG, 1 TAB Q 12 HRS
     Route: 048
  4. VALIUM                             /00017001/ [Suspect]
     Indication: INSOMNIA
     Dosage: 10 MG, 2 TABS DAILY
     Route: 048
  5. DILAUDID [Suspect]
     Indication: BACK PAIN
     Dosage: 4 MG, 3 TABS DAILY
     Route: 048

REACTIONS (3)
  - Road traffic accident [Recovered/Resolved]
  - Loss of consciousness [Recovered/Resolved]
  - Laceration [Recovered/Resolved]
